FAERS Safety Report 6526999-5 (Version None)
Quarter: 2010Q1

REPORT INFORMATION
  Report Type: 
  Country: None (occurrence: None)
  Receive Date: 20100105
  Receipt Date: 20091228
  Transmission Date: 20100710
  Serious: Yes (Death)
  Sender: FDA-Public Use
  Company Number: FR-PFIZER INC-2009315048

PATIENT
  Age: 92 Year
  Sex: Female

DRUGS (6)
  1. TRIFLUCAN [Suspect]
     Indication: ORAL CANDIDIASIS
     Dosage: UNK
     Route: 048
     Dates: start: 20091114, end: 20091117
  2. AUGMENTIN [Suspect]
     Indication: HYDROCHOLECYSTIS
     Dosage: UNK
     Route: 048
     Dates: start: 20091113, end: 20091117
  3. ROCEPHIN [Suspect]
     Indication: HYDROCHOLECYSTIS
     Dosage: UNK
     Route: 048
     Dates: start: 20091109, end: 20091113
  4. ROCEPHIN [Suspect]
     Dosage: UNK
     Route: 048
     Dates: start: 20091117, end: 20091120
  5. INIPOMP [Suspect]
     Dosage: UNK
     Route: 048
     Dates: start: 20091001, end: 20091120
  6. IMOVANE [Suspect]
     Dosage: UNK
     Route: 048
     Dates: start: 20091112, end: 20091120

REACTIONS (1)
  - TOXIC EPIDERMAL NECROLYSIS [None]
